FAERS Safety Report 5325508-6 (Version None)
Quarter: 2007Q2

REPORT INFORMATION
  Report Type: 
  Country: None (occurrence: None)
  Receive Date: 20070515
  Receipt Date: 20070503
  Transmission Date: 20071010
  Serious: Yes (Other)
  Sender: FDA-Public Use
  Company Number: ES-SANOFI-SYNTHELABO-A01200704674

PATIENT
  Age: 60 Year
  Sex: Male

DRUGS (1)
  1. UNIBENESTAN [Suspect]
     Indication: BENIGN PROSTATIC HYPERPLASIA
     Route: 048
     Dates: start: 20070219, end: 20070417

REACTIONS (3)
  - CARDIAC ARREST [None]
  - HEART RATE ABNORMAL [None]
  - PALPITATIONS [None]
